FAERS Safety Report 16397533 (Version 1)
Quarter: 2019Q2

REPORT INFORMATION
  Report Type: Spontaneous
  Country: GR (occurrence: GR)
  Receive Date: 20190606
  Receipt Date: 20190606
  Transmission Date: 20190711
  Serious: Yes (Hospitalization)
  Sender: FDA-Public Use
  Company Number: GR-ROCHE-2331692

PATIENT
  Age: 45 Year
  Sex: Male

DRUGS (1)
  1. ACTILYSE [Suspect]
     Active Substance: ALTEPLASE
     Indication: THROMBOLYSIS
     Route: 042

REACTIONS (6)
  - Drug ineffective [Unknown]
  - Off label use [Unknown]
  - No adverse event [Unknown]
  - Hemiparesis [Unknown]
  - Dysarthria [Unknown]
  - Intentional product use issue [Unknown]
